FAERS Safety Report 6847639-1 (Version None)
Quarter: 2010Q3

REPORT INFORMATION
  Report Type: 
  Country: None (occurrence: None)
  Receive Date: 20100716
  Receipt Date: 20100705
  Transmission Date: 20110219
  Serious: Yes (Other)
  Sender: FDA-Public Use
  Company Number: PHHY2010FR44894

PATIENT
  Sex: Female

DRUGS (5)
  1. FEMARA [Suspect]
     Dosage: UNK
     Route: 048
     Dates: start: 20090301
  2. FLUOROURACIL [Suspect]
     Dosage: 500 MG/M2, EVERY THREE WEEKS
     Route: 042
     Dates: start: 20080901, end: 20081001
  3. CYCLOPHOSPHAMIDE [Suspect]
     Dosage: 500 MG/M2, EVERY THREE WEEKS
     Route: 042
     Dates: start: 20080901, end: 20081001
  4. EPIRUBICIN [Suspect]
     Dosage: 100 MG/M2, EVERY THREE WEEKS
     Route: 042
     Dates: start: 20080901, end: 20081001
  5. TAXOTERE [Concomitant]
     Dosage: 100MG/M2 EVERY THREE WEEKS
     Dates: start: 20081101, end: 20081201

REACTIONS (1)
  - ALOPECIA [None]
